FAERS Safety Report 9239524 (Version 1)
Quarter: 2013Q2

REPORT INFORMATION
  Report Type: Spontaneous
  Country: US (occurrence: US)
  Receive Date: 20130418
  Receipt Date: 20130418
  Transmission Date: 20140414
  Serious: No
  Sender: FDA-Public Use
  Company Number: US-PFIZER INC-2013118340

PATIENT
  Sex: Female

DRUGS (7)
  1. TETRACYCLINE HCL [Suspect]
     Dosage: UNK
  2. ZITHROMAX [Suspect]
     Dosage: UNK
  3. CECLOR [Suspect]
     Dosage: UNK
  4. AUGMENTIN [Suspect]
     Dosage: UNK
  5. DEPAKOTE [Suspect]
     Dosage: UNK
  6. NITROFURANTOIN [Suspect]
     Dosage: UNK
  7. REGLAN [Suspect]
     Dosage: UNK

REACTIONS (1)
  - Drug hypersensitivity [Unknown]
